FAERS Safety Report 10012412 (Version 1)
Quarter: 2014Q1

REPORT INFORMATION
  Report Type: Spontaneous
  Country: US (occurrence: US)
  Receive Date: 20140312
  Receipt Date: 20140312
  Transmission Date: 20141002
  Serious: No
  Sender: FDA-Public Use
  Company Number: US-PFIZER INC-2014068587

PATIENT
  Age: 56 Year
  Sex: Female
  Weight: 47.62 kg

DRUGS (1)
  1. ESTROGENS CONJUGATED [Suspect]
     Dosage: UNK

REACTIONS (4)
  - Hypersensitivity [Unknown]
  - Blister [Unknown]
  - Rash [Unknown]
  - Urticaria [Unknown]
